FAERS Safety Report 16583169 (Version 5)
Quarter: 2019Q4

REPORT INFORMATION
  Report Type: Spontaneous
  Country: US (occurrence: US)
  Receive Date: 20190717
  Receipt Date: 20191014
  Transmission Date: 20200122
  Serious: No
  Sender: FDA-Public Use
  Company Number: US-PFIZER INC-2019303043

PATIENT
  Age: 44 Year
  Sex: Male

DRUGS (2)
  1. DICLOFENAC EPOLAMINE [Suspect]
     Active Substance: DICLOFENAC EPOLAMINE
     Dosage: UNK
  2. TRAMADOL. [Suspect]
     Active Substance: TRAMADOL
     Dosage: UNK

REACTIONS (6)
  - Drug hypersensitivity [Unknown]
  - Anxiety [Unknown]
  - Arthritis [Unknown]
  - Blood cholesterol increased [Unknown]
  - Gastrointestinal disorder [Unknown]
  - Seasonal allergy [Unknown]
